FAERS Safety Report 12070846 (Version 2)
Quarter: 2016Q2

REPORT INFORMATION
  Report Type: Spontaneous
  Country: US (occurrence: US)
  Receive Date: 20160211
  Receipt Date: 20160404
  Transmission Date: 20160815
  Serious: No
  Sender: FDA-Public Use
  Company Number: US-009507513-1602USA005281

PATIENT
  Age: 70 Year
  Sex: Female
  Weight: 77.98 kg

DRUGS (1)
  1. DULERA [Suspect]
     Active Substance: FORMOTEROL FUMARATE DIHYDRATE\MOMETASONE FUROATE
     Dosage: 2 PUFFS TWICE DAILY
     Route: 055
     Dates: start: 2011

REACTIONS (7)
  - Dyspnoea [Recovered/Resolved]
  - Product quality issue [Unknown]
  - Abasia [Not Recovered/Not Resolved]
  - Chest pain [Recovered/Resolved]
  - Dysstasia [Not Recovered/Not Resolved]
  - Dysphagia [Recovered/Resolved]
  - Drug dose omission [Unknown]

NARRATIVE: CASE EVENT DATE: 201601
